FAERS Safety Report 18432454 (Version 1)
Quarter: 2020Q4

REPORT INFORMATION
  Report Type: Spontaneous
  Country: US (occurrence: US)
  Receive Date: 20201027
  Receipt Date: 20201027
  Transmission Date: 20210114
  Serious: Yes (Hospitalization)
  Sender: FDA-Public Use
  Company Number: US-LUPIN PHARMACEUTICALS INC.-2020-05925

PATIENT
  Age: 9 Year
  Sex: Male

DRUGS (8)
  1. IMMUNE GLOBULIN [Concomitant]
     Indication: MUCOSAL INFLAMMATION
     Dosage: DIVIDED OVER 3 DAYS
     Route: 042
  2. ERYTHROMYCIN. [Concomitant]
     Active Substance: ERYTHROMYCIN
     Indication: EYE ULCER
     Dosage: UNK
     Route: 061
  3. PREDNISOLONE ACETATE. [Suspect]
     Active Substance: PREDNISOLONE ACETATE
     Indication: CORNEAL ABRASION
  4. AZITHROMYCIN ANHYDROUS. [Suspect]
     Active Substance: AZITHROMYCIN ANHYDROUS
     Indication: PNEUMONIA MYCOPLASMAL
     Dosage: 5 MILLIGRAM/KILOGRAM, QD
     Route: 065
  5. ERYTHROMYCIN. [Concomitant]
     Active Substance: ERYTHROMYCIN
     Indication: CORNEAL ABRASION
  6. PREDNISOLONE ACETATE. [Suspect]
     Active Substance: PREDNISOLONE ACETATE
     Indication: EYE ULCER
     Dosage: UNK
     Route: 047
  7. CEFTRIAXONE. [Suspect]
     Active Substance: CEFTRIAXONE
     Indication: PNEUMONIA MYCOPLASMAL
     Dosage: 50 MILLIGRAM/KILOGRAM, BID
     Route: 065
  8. IMMUNE GLOBULIN [Concomitant]
     Indication: SKIN LESION

REACTIONS (1)
  - Drug ineffective [Unknown]
